FAERS Safety Report 11274109 (Version 1)
Quarter: 2015Q3

REPORT INFORMATION
  Report Type: Spontaneous
  Country: US (occurrence: None)
  Receive Date: 20150713
  Receipt Date: 20150713
  Transmission Date: 20151125
  Serious: No
  Sender: FDA-Public Use
  Company Number: 2014-00057M

PATIENT
  Age: 48 Year
  Sex: Female
  Weight: 52.16 kg

DRUGS (3)
  1. ZICAM COLD REMEDY NASAL SWABS (ZINC) [Suspect]
     Active Substance: ZINC ACETATE\ZINC GLUCONATE
     Dosage: INSERTED NASALLY X NOS
     Dates: start: 201204
  2. CALCIUM SUPPLEMENT [Concomitant]
     Active Substance: CALCIUM
  3. MULTIVITAMIN [Concomitant]
     Active Substance: VITAMINS

REACTIONS (1)
  - Anosmia [None]

NARRATIVE: CASE EVENT DATE: 201204
